FAERS Safety Report 9934694 (Version 1)
Quarter: 2014Q1

REPORT INFORMATION
  Report Type: Spontaneous
  Country: US (occurrence: US)
  Receive Date: 20140228
  Receipt Date: 20140228
  Transmission Date: 20141002
  Serious: Yes (Other)
  Sender: FDA-Public Use
  Company Number: US-ASTRAZENECA-2014SE12711

PATIENT
  Age: 82 Year
  Sex: Female
  Weight: 26.8 kg

DRUGS (7)
  1. METOPROLOL SUCCINATE [Suspect]
     Indication: HYPERTENSION
     Route: 048
  2. METOPROLOL SUCCINATE [Suspect]
     Indication: HYPERTENSION
     Route: 048
  3. SUPPLEMENTS [Concomitant]
  4. MULTIVITAMIN [Concomitant]
     Indication: VITAMIN SUPPLEMENTATION
  5. CALCIUM [Concomitant]
     Indication: MINERAL SUPPLEMENTATION
  6. VITAMIN D3 [Concomitant]
     Indication: VITAMIN SUPPLEMENTATION
  7. GLUCOSAMINE [Concomitant]
     Indication: ARTHRITIS

REACTIONS (8)
  - Fall [Unknown]
  - Spinal fracture [Unknown]
  - Stress [Unknown]
  - Photophobia [Unknown]
  - Osteoporosis [Unknown]
  - Body height decreased [Unknown]
  - Hypotension [Unknown]
  - Alopecia [Unknown]
